FAERS Safety Report 9845592 (Version 1)
Quarter: 2014Q1

REPORT INFORMATION
  Report Type: Spontaneous
  Country: GB (occurrence: GB)
  Receive Date: 20140127
  Receipt Date: 20140127
  Transmission Date: 20141002
  Serious: Yes (Hospitalization)
  Sender: FDA-Public Use
  Company Number: GB-B.I. PHARMACEUTICALS,INC./RIDGEFIELD-2014-BI-02977UK

PATIENT
  Age: 93 Year
  Sex: Female

DRUGS (4)
  1. PRADAXA [Suspect]
     Indication: CEREBROVASCULAR ACCIDENT PROPHYLAXIS
     Dosage: 220 MG
  2. PRADAXA [Suspect]
     Indication: ATRIAL FIBRILLATION
  3. DEMENTIA MEDICATION (UNSPECIFIED) [Concomitant]
     Indication: DEMENTIA
  4. BLOOD PRESSURE MEDICATION (UNSPECIFIED) [Concomitant]
     Indication: BLOOD PRESSURE

REACTIONS (1)
  - Cerebrovascular accident [Unknown]
